FAERS Safety Report 17033215 (Version 1)
Quarter: 2019Q4

REPORT INFORMATION
  Report Type: Report from Study
  Country: FR (occurrence: FR)
  Receive Date: 20191114
  Receipt Date: 20191114
  Transmission Date: 20200122
  Serious: Yes (Life-Threatening, Hospitalization)
  Sender: FDA-Public Use
  Company Number: FR-CELGENEUS-FRA-20191104409

PATIENT
  Age: 45 Year
  Sex: Female
  Weight: 75 kg

DRUGS (4)
  1. GEMCITABINE. [Suspect]
     Active Substance: GEMCITABINE
     Dosage: 1840 MILLIGRAM
     Route: 041
     Dates: start: 20181128
  2. GEMCITABINE. [Suspect]
     Active Substance: GEMCITABINE
     Indication: PANCREATIC CARCINOMA METASTATIC
     Dosage: 1840 MILLIGRAM
     Route: 041
     Dates: start: 20181114
  3. ABRAXANE [Suspect]
     Active Substance: PACLITAXEL
     Indication: PANCREATIC CARCINOMA METASTATIC
     Dosage: 233.7 MILLIGRAM
     Route: 041
     Dates: start: 20181114
  4. ABRAXANE [Suspect]
     Active Substance: PACLITAXEL
     Dosage: 233.7 MILLIGRAM
     Route: 041
     Dates: start: 20181128

REACTIONS (2)
  - Cholangitis [Recovered/Resolved]
  - Device occlusion [Recovered/Resolved]

NARRATIVE: CASE EVENT DATE: 20190102
